FAERS Safety Report 4847161-8 (Version None)
Quarter: 2005Q4

REPORT INFORMATION
  Report Type: 
  Country: None (occurrence: None)
  Receive Date: 20051206
  Receipt Date: 20051206
  Transmission Date: 20060501
  Serious: Yes (Other)
  Sender: FDA-Public Use
  Company Number: None

PATIENT
  Age: 73 Year
  Sex: Female

DRUGS (6)
  1. FENTANYL [Suspect]
     Indication: PAIN
     Dosage: 1 EVERY 72 HOURS
     Route: 062
     Dates: start: 20051001, end: 20051203
  2. ACIPHEX [Concomitant]
  3. LEXAPRO [Concomitant]
  4. MOBIC [Concomitant]
  5. DETROL LA [Concomitant]
  6. VICODIN ES [Concomitant]

REACTIONS (5)
  - DRUG INEFFECTIVE [None]
  - ERYTHEMA [None]
  - PHARMACEUTICAL PRODUCT COMPLAINT [None]
  - PRURITUS [None]
  - THERAPEUTIC RESPONSE UNEXPECTED WITH DRUG SUBSTITUTION [None]
